FAERS Safety Report 5341763-0 (Version None)
Quarter: 2007Q2

REPORT INFORMATION
  Report Type: 
  Country: None (occurrence: None)
  Receive Date: 20070529
  Receipt Date: 20070529
  Transmission Date: 20071010
  Serious: Yes (Other)
  Sender: FDA-Public Use
  Company Number: None

PATIENT
  Age: 84 Year
  Sex: Female
  Weight: 52.1637 kg

DRUGS (1)
  1. LIPITOR [Suspect]
     Indication: HYPERCHOLESTEROLAEMIA
     Dosage: 40MG ONE DAILY PO
     Route: 048
     Dates: start: 20060202, end: 20061117

REACTIONS (2)
  - DRUG HYPERSENSITIVITY [None]
  - RASH PRURITIC [None]
